FAERS Safety Report 18629142 (Version 1)
Quarter: 2020Q4

REPORT INFORMATION
  Report Type: Report from Study
  Country: JP (occurrence: JP)
  Receive Date: 20201217
  Receipt Date: 20201217
  Transmission Date: 20210114
  Serious: Yes (Life-Threatening, Hospitalization)
  Sender: FDA-Public Use
  Company Number: JP-ASTRAZENECA-2020SF68237

PATIENT
  Age: 57 Year
  Sex: Male
  Weight: 35 kg

DRUGS (4)
  1. S-1TAIHO OD [Suspect]
     Active Substance: GIMERACIL\OTERACIL\TEGAFUR
     Indication: NON-SMALL CELL LUNG CANCER
     Dosage: 100 MG
     Route: 048
     Dates: start: 20200813, end: 20200823
  2. S-1TAIHO OD [Suspect]
     Active Substance: GIMERACIL\OTERACIL\TEGAFUR
     Indication: NON-SMALL CELL LUNG CANCER
     Dosage: TOTAL DOSE: 2100MG
     Route: 048
     Dates: start: 20200916, end: 20200923
  3. CISPLATIN. [Suspect]
     Active Substance: CISPLATIN
     Indication: NON-SMALL CELL LUNG CANCER
     Dosage: 84 MG
     Route: 041
     Dates: start: 20200813, end: 20200916
  4. IMFINZI [Suspect]
     Active Substance: DURVALUMAB
     Indication: NON-SMALL CELL LUNG CANCER
     Route: 041

REACTIONS (14)
  - Pneumonia bacterial [Recovering/Resolving]
  - Platelet count decreased [Unknown]
  - Anaemia [Unknown]
  - Hypoalbuminaemia [Unknown]
  - Aspartate aminotransferase increased [Unknown]
  - Alanine aminotransferase increased [Unknown]
  - Pyrexia [Unknown]
  - Hyponatraemia [Unknown]
  - Lymphocyte count decreased [Unknown]
  - Decreased appetite [Unknown]
  - Dyspnoea [Unknown]
  - Vomiting [Unknown]
  - Hypocalcaemia [Unknown]
  - Fatigue [Unknown]

NARRATIVE: CASE EVENT DATE: 2020
